FAERS Safety Report 16752217 (Version 1)
Quarter: 2019Q3

REPORT INFORMATION
  Report Type: Spontaneous
  Country: US (occurrence: US)
  Receive Date: 20190828
  Receipt Date: 20190828
  Transmission Date: 20191005
  Serious: Yes (Other)
  Sender: FDA-Public Use
  Company Number: US-GLAXOSMITHKLINE-US2019AMR153840

PATIENT
  Sex: Female

DRUGS (4)
  1. NUCALA [Suspect]
     Active Substance: MEPOLIZUMAB
     Indication: PRODUCT USED FOR UNKNOWN INDICATION
     Dosage: UNK
     Route: 065
  2. DUPIXENT [Suspect]
     Active Substance: DUPILUMAB
     Indication: PRURITUS
  3. DUPIXENT [Suspect]
     Active Substance: DUPILUMAB
     Indication: DYSPNOEA
  4. DUPIXENT [Suspect]
     Active Substance: DUPILUMAB
     Indication: WHEEZING
     Dosage: UNK
     Route: 065

REACTIONS (8)
  - Wheezing [Recovering/Resolving]
  - Anaphylactic reaction [Recovering/Resolving]
  - Heart rate increased [Recovering/Resolving]
  - Pruritus [Recovered/Resolved]
  - Paraesthesia [Recovering/Resolving]
  - Dyspnoea [Recovering/Resolving]
  - Blood pressure increased [Recovering/Resolving]
  - Dizziness [Recovered/Resolved]
